FAERS Safety Report 21244327 (Version 1)
Quarter: 2022Q3

REPORT INFORMATION
  Report Type: Spontaneous
  Country: US (occurrence: None)
  Receive Date: 20220822
  Receipt Date: 20220822
  Transmission Date: 20221027
  Serious: No
  Sender: FDA-Public Use
  Company Number: None

PATIENT
  Sex: Male

DRUGS (1)
  1. HUMIRA [Suspect]
     Active Substance: ADALIMUMAB
     Indication: Rheumatoid arthritis
     Dosage: OTHER FREQUENCY : EVERY14DAYS;?
     Route: 058
     Dates: start: 201910

REACTIONS (6)
  - Injection site pain [None]
  - Needle issue [None]
  - Incorrect dose administered [None]
  - Injection site extravasation [None]
  - Drug delivery system malfunction [None]
  - Device defective [None]
